FAERS Safety Report 8716556 (Version 2)
Quarter: 2013Q4

REPORT INFORMATION
  Report Type: Spontaneous
  Country: US (occurrence: US)
  Receive Date: 20120910
  Receipt Date: 20131003
  Transmission Date: 20140711
  Serious: No
  Sender: FDA-Public Use
  Company Number: US-009507513-1208USA002420

PATIENT
  Age: 9 Year
  Sex: Female

DRUGS (1)
  1. MAXALT MLT [Suspect]
     Indication: MIGRAINE
     Dosage: 1 DF, PRN
     Route: 060
     Dates: start: 2007

REACTIONS (2)
  - Nausea [Unknown]
  - Product taste abnormal [Unknown]
